FAERS Safety Report 8714971 (Version 3)
Quarter: 2013Q2

REPORT INFORMATION
  Report Type: Report from Study
  Country: CA (occurrence: CA)
  Receive Date: 20120809
  Receipt Date: 20130619
  Transmission Date: 20140414
  Serious: Yes (Death, Other)
  Sender: FDA-Public Use
  Company Number: PHHY2012CA068459

PATIENT
  Sex: Female

DRUGS (3)
  1. ACLASTA [Suspect]
     Indication: OSTEOPOROSIS
     Dosage: UNK
     Route: 042
     Dates: start: 20100331
  2. ACLASTA [Suspect]
     Dosage: UNK
     Route: 042
     Dates: start: 20110322
  3. ACLASTA [Suspect]
     Dosage: UNK
     Route: 042
     Dates: start: 20120910

REACTIONS (3)
  - Metastases to spine [Fatal]
  - Respiratory failure [Fatal]
  - Spinal fracture [Unknown]
